FAERS Safety Report 10083279 (Version 1)
Quarter: 2014Q2

REPORT INFORMATION
  Report Type: Spontaneous
  Country: US (occurrence: None)
  Receive Date: 20140416
  Receipt Date: 20140416
  Transmission Date: 20141212
  Serious: Yes (Other)
  Sender: FDA-Public Use
  Company Number: None

PATIENT
  Age: 31 Year
  Sex: Female

DRUGS (1)
  1. MAKENA [Suspect]
     Indication: PREGNANCY
     Route: 030
     Dates: start: 20140121, end: 20140414

REACTIONS (2)
  - Injection site pain [None]
  - Therapy cessation [None]
